FAERS Safety Report 8575053-X (Version None)
Quarter: 2012Q2

REPORT INFORMATION
  Report Type: 
  Country: None (occurrence: None)
  Receive Date: 20120423
  Receipt Date: 20100426
  Transmission Date: 20120825
  Serious: Yes (Other)
  Sender: FDA-Public Use
  Company Number: PHEH2009US14452

PATIENT
  Age: 76 Year
  Sex: Female
  Weight: 39 kg

DRUGS (6)
  1. AMBIEN [Concomitant]
  2. PRILOSEC [Concomitant]
  3. ZEBETA [Concomitant]
  4. EXJADE [Suspect]
     Dosage: 750 MG, QD, ORAL
     Route: 048
     Dates: start: 20070101
  5. ACTONEL [Concomitant]
  6. NEUPOGEN [Concomitant]

REACTIONS (4)
  - DIARRHOEA [None]
  - GASTROINTESTINAL DISORDER [None]
  - SLEEP DISORDER [None]
  - SERUM FERRITIN INCREASED [None]
